FAERS Safety Report 11279184 (Version 1)
Quarter: 2015Q3

REPORT INFORMATION
  Report Type: Spontaneous
  Country: US (occurrence: None)
  Receive Date: 20150716
  Receipt Date: 20150716
  Transmission Date: 20151125
  Serious: Yes (Other)
  Sender: FDA-Public Use
  Company Number: None

PATIENT
  Age: 80 Year
  Sex: Female

DRUGS (1)
  1. HUMIRA [Suspect]
     Active Substance: ADALIMUMAB
     Indication: RHEUMATOID ARTHRITIS
     Dosage: DOSE FORM: INJECTABLE  FREQUENCY: QOWK  ?DATES OF USE:  07/13/154 WAS ONLY DOSE
     Route: 058
     Dates: start: 20150713

REACTIONS (4)
  - Dysuria [None]
  - Rash [None]
  - Urine odour abnormal [None]
  - Photosensitivity reaction [None]

NARRATIVE: CASE EVENT DATE: 20150713
